FAERS Safety Report 19062626 (Version 1)
Quarter: 2021Q1

REPORT INFORMATION
  Report Type: Spontaneous
  Country: ID (occurrence: ID)
  Receive Date: 20210326
  Receipt Date: 20210326
  Transmission Date: 20210420
  Serious: Yes (Hospitalization, Other)
  Sender: FDA-Public Use
  Company Number: ID-SUN PHARMACEUTICAL INDUSTRIES LTD-2021RR-288062

PATIENT
  Age: 59 Year
  Sex: Male

DRUGS (6)
  1. LEVOFLOXACIN. [Suspect]
     Active Substance: LEVOFLOXACIN
     Indication: AUTOIMMUNE THYROID DISORDER
     Dosage: 750 MILLIGRAM, DAILY
     Route: 048
  2. AMLODIPINE [Suspect]
     Active Substance: AMLODIPINE BESYLATE
     Indication: AUTOIMMUNE THYROID DISORDER
     Dosage: 5 MILLIGRAM, QD
     Route: 048
  3. ETHAMBUTOL [Suspect]
     Active Substance: ETHAMBUTOL HYDROCHLORIDE
     Indication: AUTOIMMUNE THYROID DISORDER
     Dosage: 750 MILLIGRAM, QD
     Route: 048
  4. METHYLPREDNISOLONE. [Suspect]
     Active Substance: METHYLPREDNISOLONE
     Indication: AUTOIMMUNE THYROID DISORDER
     Dosage: 4 MILLIGRAM, QD
     Route: 048
  5. ISONIAZID. [Suspect]
     Active Substance: ISONIAZID
     Indication: AUTOIMMUNE THYROID DISORDER
     Dosage: 300 MILLIGRAM, QD
     Route: 048
  6. PYRAZINAMIDE. [Suspect]
     Active Substance: PYRAZINAMIDE
     Indication: AUTOIMMUNE THYROID DISORDER
     Dosage: 1250 MILLIGRAM, QD
     Route: 048

REACTIONS (2)
  - Pancytopenia [Unknown]
  - Pneumonia klebsiella [Unknown]
